FAERS Safety Report 7951895-6 (Version None)
Quarter: 2011Q4

REPORT INFORMATION
  Report Type: 
  Country: None (occurrence: None)
  Receive Date: 20111201
  Receipt Date: 20111201
  Transmission Date: 20120403
  Serious: Yes (Other)
  Sender: FDA-Public Use
  Company Number: None

PATIENT
  Age: 32 Year
  Sex: Female
  Weight: 72.574 kg

DRUGS (1)
  1. VENLAFAXINE [Suspect]

REACTIONS (5)
  - PARAESTHESIA [None]
  - HALLUCINATION, AUDITORY [None]
  - NIGHTMARE [None]
  - NAUSEA [None]
  - WITHDRAWAL SYNDROME [None]
